FAERS Safety Report 16993433 (Version 1)
Quarter: 2019Q4

REPORT INFORMATION
  Report Type: Spontaneous
  Country: GB (occurrence: GB)
  Receive Date: 20191105
  Receipt Date: 20191105
  Transmission Date: 20200122
  Serious: Yes (Life-Threatening, Hospitalization)
  Sender: FDA-Public Use
  Company Number: GB-TEVA-2019-GB-1130566

PATIENT
  Age: 44 Year
  Sex: Female
  Weight: 70 kg

DRUGS (14)
  1. TURMERIC [Concomitant]
     Active Substance: HERBALS\TURMERIC
  2. TRAMADOL. [Concomitant]
     Active Substance: TRAMADOL
  3. PREGABALIN. [Concomitant]
     Active Substance: PREGABALIN
  4. AMITRIPTYLINE HYDROCHLORIDE. [Concomitant]
     Active Substance: AMITRIPTYLINE HYDROCHLORIDE
  5. CLOPIDOGREL [Concomitant]
     Active Substance: CLOPIDOGREL BISULFATE
  6. OMEPRAZOLE. [Concomitant]
     Active Substance: OMEPRAZOLE
  7. FOLIC ACID. [Concomitant]
     Active Substance: FOLIC ACID
  8. NIFEDIPINE. [Concomitant]
     Active Substance: NIFEDIPINE
  9. LEFLUNOMIDE. [Suspect]
     Active Substance: LEFLUNOMIDE
     Indication: PSORIATIC ARTHROPATHY
     Dosage: 20 MILLIGRAM PER DAY
     Route: 048
     Dates: start: 20150916, end: 20190902
  10. BUPRENORPHINE. [Concomitant]
     Active Substance: BUPRENORPHINE
  11. CELECOXIB. [Concomitant]
     Active Substance: CELECOXIB
  12. PARACETAMOL [Concomitant]
     Active Substance: ACETAMINOPHEN
  13. VITAMIN D [Concomitant]
     Active Substance: VITAMIN D NOS
  14. SECUKINUMAB. [Suspect]
     Active Substance: SECUKINUMAB
     Indication: PSORIATIC ARTHROPATHY
     Dosage: 300 MILLIGRAM PER MONTH
     Route: 058
     Dates: start: 201710

REACTIONS (2)
  - Dyspnoea [Unknown]
  - Acute interstitial pneumonitis [Recovering/Resolving]

NARRATIVE: CASE EVENT DATE: 20190902
